FAERS Safety Report 4892073-7 (Version None)
Quarter: 2006Q1

REPORT INFORMATION
  Report Type: 
  Country: None (occurrence: None)
  Receive Date: 20060126
  Receipt Date: 20060124
  Transmission Date: 20060701
  Serious: Yes (Death)
  Sender: FDA-Public Use
  Company Number: 2006AP00405

PATIENT
  Sex: Male

DRUGS (1)
  1. CASODEX [Suspect]
     Indication: PROSTATE CANCER
     Route: 048
     Dates: start: 20051201

REACTIONS (2)
  - GENERAL PHYSICAL HEALTH DETERIORATION [None]
  - SUDDEN DEATH [None]
